FAERS Safety Report 4410900-4 (Version None)
Quarter: 2004Q3

REPORT INFORMATION
  Report Type: 
  Country: None (occurrence: None)
  Receive Date: 20040726
  Receipt Date: 20040713
  Transmission Date: 20050211
  Serious: Yes (Other)
  Sender: FDA-Public Use
  Company Number: 2004222396US

PATIENT
  Age: 14 Year
  Sex: Female
  Weight: 54.2 kg

DRUGS (4)
  1. GENOTROPIN [Suspect]
     Indication: HYPOPITUITARISM
     Dosage: 16.8 MG, 6 INJ/WEEK, SUBCUTANEOUS
     Route: 058
     Dates: start: 20020722
  2. CORTEF [Concomitant]
  3. DDAVP [Concomitant]
  4. DEXAMETHASONE [Concomitant]

REACTIONS (3)
  - CRANIOPHARYNGIOMA [None]
  - NEOPLASM PROGRESSION [None]
  - OPTIC NERVE DISORDER [None]
